FAERS Safety Report 18904216 (Version 2)
Quarter: 2021Q1

REPORT INFORMATION
  Report Type: Spontaneous
  Country: AU (occurrence: AU)
  Receive Date: 20210217
  Receipt Date: 20210217
  Transmission Date: 20210420
  Serious: Yes (Death)
  Sender: FDA-Public Use
  Company Number: AU-PFIZER INC-2021136569

PATIENT
  Age: 40 Year
  Sex: Female

DRUGS (14)
  1. ACETYLCYSTEINE. [Suspect]
     Active Substance: ACETYLCYSTEINE
     Indication: BACILLUS INFECTION
     Dosage: UNK
  2. METRONIDAZOLE. [Suspect]
     Active Substance: METRONIDAZOLE
     Indication: BACTERIAL FOOD POISONING
     Dosage: 500 MG (500 MG/12 HOURS)
     Route: 042
  3. PIPERACILLIN/TAZOBACTAM [Suspect]
     Active Substance: PIPERACILLIN SODIUM\TAZOBACTAM SODIUM
     Indication: BACTERIAL FOOD POISONING
  4. VITAMIN K [Suspect]
     Active Substance: PHYTONADIONE
     Indication: BACILLUS INFECTION
     Dosage: UNK
  5. ACETYLCYSTEINE. [Suspect]
     Active Substance: ACETYLCYSTEINE
     Indication: BACTERIAL FOOD POISONING
  6. MEROPENEM. [Suspect]
     Active Substance: MEROPENEM
     Indication: BACILLUS INFECTION
     Dosage: 2 G (2 G/8 HOURS)
  7. VANCOMYCIN HCL [Suspect]
     Active Substance: VANCOMYCIN HYDROCHLORIDE
     Indication: BACILLUS INFECTION
     Dosage: 2 G (CONTINUOUS INFUSION 2 G/24 HOURS)
     Route: 042
  8. AZITHROMYCIN ANHYDROUS. [Suspect]
     Active Substance: AZITHROMYCIN ANHYDROUS
     Indication: BACTERIAL FOOD POISONING
  9. VANCOMYCIN HCL [Suspect]
     Active Substance: VANCOMYCIN HYDROCHLORIDE
     Indication: BACTERIAL FOOD POISONING
  10. MEROPENEM. [Suspect]
     Active Substance: MEROPENEM
     Indication: BACTERIAL FOOD POISONING
  11. METRONIDAZOLE. [Suspect]
     Active Substance: METRONIDAZOLE
     Indication: BACILLUS INFECTION
     Dosage: UNK
     Route: 042
  12. AZITHROMYCIN ANHYDROUS. [Suspect]
     Active Substance: AZITHROMYCIN ANHYDROUS
     Indication: BACILLUS INFECTION
     Dosage: UNK
     Route: 042
  13. PIPERACILLIN/TAZOBACTAM [Suspect]
     Active Substance: PIPERACILLIN SODIUM\TAZOBACTAM SODIUM
     Indication: BACILLUS INFECTION
     Dosage: UNK
     Route: 042
  14. VITAMIN K [Suspect]
     Active Substance: PHYTONADIONE
     Indication: BACTERIAL FOOD POISONING

REACTIONS (2)
  - Off label use [Fatal]
  - Drug ineffective for unapproved indication [Fatal]
